FAERS Safety Report 8770516 (Version 1)
Quarter: 2012Q4

REPORT INFORMATION
  Report Type: 
  Country: US (occurrence: US)
  Receive Date: 20120906
  Receipt Date: 20120906
  Transmission Date: 20130627
  Serious: Yes (Other)
  Sender: FDA-Public Use
  Company Number: US-PFIZER INC-2012219593

PATIENT
  Age: 44 Year
  Sex: Male
  Weight: 112.02 kg

DRUGS (1)
  1. NEURONTIN [Suspect]
     Indication: NEUROPATHY PERIPHERAL
     Dosage: 1800 mg, daily
     Route: 048

REACTIONS (1)
  - Renal disorder [Unknown]
